FAERS Safety Report 20682416 (Version 2)
Quarter: 2022Q3

REPORT INFORMATION
  Report Type: Report from Study
  Country: GB (occurrence: GB)
  Receive Date: 20220407
  Receipt Date: 20220902
  Transmission Date: 20221027
  Serious: Yes (Other)
  Sender: FDA-Public Use
  Company Number: GB-TEVA-2022-GB-2023951

PATIENT
  Age: 66 Year
  Sex: Female

DRUGS (1)
  1. AJOVY [Suspect]
     Active Substance: FREMANEZUMAB-VFRM
     Indication: Product used for unknown indication
     Route: 065

REACTIONS (3)
  - Abdominal discomfort [Unknown]
  - Food poisoning [Unknown]
  - Norovirus infection [Unknown]

NARRATIVE: CASE EVENT DATE: 20220301
